FAERS Safety Report 9384291 (Version 1)
Quarter: 2013Q3

REPORT INFORMATION
  Report Type: Spontaneous
  Country: GB (occurrence: GB)
  Receive Date: 20130705
  Receipt Date: 20130705
  Transmission Date: 20140515
  Serious: Yes (Other)
  Sender: FDA-Public Use
  Company Number: PHHY2013GB069037

PATIENT
  Age: 53 Year
  Sex: Female

DRUGS (4)
  1. STALEVO [Suspect]
     Indication: PARKINSON^S DISEASE
     Dosage: 200/75/18.25 MG
     Route: 048
     Dates: start: 2009
  2. MIRAPEXIN [Suspect]
     Indication: PARKINSON^S DISEASE
     Dosage: 2.62 MG, DAILY
     Route: 048
     Dates: start: 200912
  3. MIRAPEXIN [Suspect]
     Dosage: DOSE REDUCED
     Dates: start: 201304
  4. RASAGILINE [Suspect]
     Indication: PARKINSON^S DISEASE
     Dosage: 1 MG, DAILY
     Route: 048
     Dates: start: 2008

REACTIONS (1)
  - Pathological gambling [Recovering/Resolving]
